FAERS Safety Report 25934024 (Version 6)
Quarter: 2025Q4

REPORT INFORMATION
  Report Type: Report from Study
  Country: US (occurrence: US)
  Receive Date: 20251017
  Receipt Date: 20251218
  Transmission Date: 20260117
  Serious: Yes (Other)
  Sender: SPRINGWORKS THERAPEUTIC
  Company Number: US-SPRINGWORKS THERAPEUTICS-SW-003330

PATIENT
  Age: 62 Year
  Sex: Male
  Weight: 62.132 kg

DRUGS (6)
  1. MIRDAMETINIB [Suspect]
     Active Substance: MIRDAMETINIB
     Indication: Neurofibromatosis
     Dosage: 2 MILLIGRAM, BID DAILY FOR 21 DAYS ON
     Route: 061
     Dates: start: 20250826, end: 20251002
  2. MIRDAMETINIB [Suspect]
     Active Substance: MIRDAMETINIB
     Indication: Nervous system neoplasm benign
     Dosage: 4 MILLIGRAM, BID
     Route: 061
     Dates: start: 20250826
  3. MIRDAMETINIB [Suspect]
     Active Substance: MIRDAMETINIB
     Dosage: 2 MILLIGRAM, BID
     Route: 061
     Dates: end: 20251010
  4. DOXYCYCLINE [Concomitant]
     Active Substance: DOXYCYCLINE
     Indication: Product used for unknown indication
  5. TRIAMCINOLONE [Concomitant]
     Active Substance: TRIAMCINOLONE
     Indication: Product used for unknown indication
  6. GENUINE ASPIRIN [Concomitant]
     Active Substance: ASPIRIN
     Indication: Product used for unknown indication
     Dosage: UNK

REACTIONS (11)
  - Blindness unilateral [Not Recovered/Not Resolved]
  - Skin burning sensation [Unknown]
  - Pain of skin [Unknown]
  - Depression [Recovering/Resolving]
  - Fall [Unknown]
  - Diarrhoea [Recovering/Resolving]
  - Constipation [Recovering/Resolving]
  - Headache [Unknown]
  - Rash [Unknown]
  - Malaise [Unknown]
  - Product dose omission issue [Unknown]

NARRATIVE: CASE EVENT DATE: 20250903
